FAERS Safety Report 7569733-2 (Version None)
Quarter: 2011Q2

REPORT INFORMATION
  Report Type: 
  Country: None (occurrence: None)
  Receive Date: 20110617
  Receipt Date: 20110607
  Transmission Date: 20111010
  Serious: Yes (Other)
  Sender: FDA-Public Use
  Company Number: 2011SP026888

PATIENT
  Sex: Male

DRUGS (2)
  1. PEGASYS [Suspect]
     Indication: HEPATITIS C
     Dates: end: 20100501
  2. RIBAVIRIN [Suspect]
     Indication: HEPATITIS C
     Dates: end: 20100501

REACTIONS (7)
  - DYSPNOEA [None]
  - SKIN EXFOLIATION [None]
  - FATIGUE [None]
  - INSOMNIA [None]
  - AMNESIA [None]
  - PRURITUS GENERALISED [None]
  - THERAPEUTIC PRODUCT INEFFECTIVE [None]
